FAERS Safety Report 4949424-4 (Version None)
Quarter: 2006Q1

REPORT INFORMATION
  Report Type: 
  Country: None (occurrence: None)
  Receive Date: 20060321
  Receipt Date: 20060317
  Transmission Date: 20060701
  Serious: Yes (Death)
  Sender: FDA-Public Use
  Company Number: US-BRISTOL-MYERS SQUIBB COMPANY-13319652

PATIENT
  Age: 83 Year
  Sex: Female
  Weight: 60 kg

DRUGS (6)
  1. GLUCOVANCE [Suspect]
  2. ISOSORBIDE [Concomitant]
  3. DYNACIRC [Concomitant]
  4. TRENTAL [Concomitant]
  5. ASPIRIN [Concomitant]
  6. CENTRUM [Concomitant]

REACTIONS (1)
  - DEATH [None]
